FAERS Safety Report 6261735-1 (Version None)
Quarter: 2009Q3

REPORT INFORMATION
  Report Type: 
  Country: None (occurrence: None)
  Receive Date: 20090702
  Receipt Date: 20090401
  Transmission Date: 20100115
  Serious: No
  Sender: FDA-Public Use
  Company Number: 1000005495

PATIENT
  Age: 78 Year
  Sex: Male

DRUGS (4)
  1. BYSTOLIC [Suspect]
     Indication: HYPERTENSION
     Dosage: 5 MG (5 MG, 1 IN 1 D), ORAL : 20 MG (10 MG,2 IN 1 D), ORAL
     Route: 048
     Dates: start: 20090317, end: 20090324
  2. BYSTOLIC [Suspect]
     Indication: HYPERTENSION
     Dosage: 5 MG (5 MG, 1 IN 1 D), ORAL : 20 MG (10 MG,2 IN 1 D), ORAL
     Route: 048
     Dates: start: 20090325
  3. VERAPAMIL [Concomitant]
  4. RAMIPRIL [Concomitant]

REACTIONS (1)
  - HEART RATE DECREASED [None]
